FAERS Safety Report 9594172 (Version 1)
Quarter: 2013Q3

REPORT INFORMATION
  Report Type: Spontaneous
  Country: US (occurrence: None)
  Receive Date: 20130923
  Receipt Date: 20130923
  Transmission Date: 20140515
  Serious: Yes (Death)
  Sender: FDA-Public Use
  Company Number: 2013STPI000202

PATIENT
  Age: 57 Year
  Sex: Female
  Weight: 46.7 kg

DRUGS (9)
  1. MATULANE [Suspect]
     Indication: LYMPHOMA
     Dosage: 50 MG, QOD, ORAL
     Route: 048
     Dates: start: 201302, end: 20130521
  2. PREDNISONE (PREDNISONE) [Concomitant]
  3. SYNTHROID (LEVOTHYROXINE SODIUM) [Concomitant]
  4. ACYCLOVIR (ACICLOVIR) (ACICLOVIR) [Concomitant]
  5. NEXIUM (ESOMEPRAZOLE) [Concomitant]
  6. ETOPOSIDE (ETOPOSIDE) [Concomitant]
  7. CYCLOPHOSPHAMIDE (CYCLOPHOSPHAMIDE) [Concomitant]
  8. BACTRIM DS (SULFAMETHOXAZOLE, TRIMETHOPRIM) [Concomitant]
  9. RITUXAN (RITUXIMAB) (UNKNOWN) [Concomitant]

REACTIONS (1)
  - Disease progression [None]
